FAERS Safety Report 8813114 (Version 1)
Quarter: 2012Q4

REPORT INFORMATION
  Report Type: 
  Country: US (occurrence: US)
  Receive Date: 20120927
  Receipt Date: 20120927
  Transmission Date: 20130627
  Serious: No
  Sender: FDA-Public Use
  Company Number: US-AMGEN-USASP2012050150

PATIENT
  Age: 85 Year
  Sex: Female

DRUGS (2)
  1. PROLIA [Suspect]
     Indication: OSTEOPOROSIS POSTMENOPAUSAL
     Dosage: 60 mg, q6mo
     Route: 058
     Dates: start: 20120716
  2. PREDNISONE [Concomitant]
     Dosage: 10 mg, bid
     Dates: start: 20120805, end: 20120807

REACTIONS (6)
  - Oral disorder [Recovered/Resolved]
  - Vaginal lesion [Unknown]
  - Skin lesion [Unknown]
  - Oedema [Unknown]
  - Arthralgia [Recovering/Resolving]
  - Myalgia [Recovering/Resolving]
